FAERS Safety Report 11174511 (Version 1)
Quarter: 2015Q2

REPORT INFORMATION
  Report Type: Spontaneous
  Country: US (occurrence: None)
  Receive Date: 20150608
  Receipt Date: 20150608
  Transmission Date: 20150821
  Serious: No
  Sender: FDA-Public Use
  Company Number: None

PATIENT
  Age: 60 Year
  Sex: Male

DRUGS (11)
  1. BIAXIN [Concomitant]
     Active Substance: CLARITHROMYCIN
  2. LORAZEPAM. [Concomitant]
     Active Substance: LORAZEPAM
  3. SENNA [Concomitant]
     Active Substance: SENNA LEAF\SENNOSIDES\SENNOSIDES A AND B
  4. GABAPENTIN. [Concomitant]
     Active Substance: GABAPENTIN
  5. NEUPOGEN [Concomitant]
     Active Substance: FILGRASTIM
  6. ACYCLOVIR. [Concomitant]
     Active Substance: ACYCLOVIR
  7. VIDAA [Concomitant]
  8. POMALYST [Concomitant]
     Active Substance: POMALIDOMIDE
  9. PROCRIT [Suspect]
     Active Substance: ERYTHROPOIETIN
     Indication: PLASMA CELL MYELOMA
     Dosage: 1ML  QWK SQ
     Route: 058
     Dates: start: 20150311
  10. DESAMETHASONE [Concomitant]
     Active Substance: DEXAMETHASONE
  11. MORPHINE [Concomitant]
     Active Substance: MORPHINE

REACTIONS (2)
  - Drug dose omission [None]
  - Memory impairment [None]

NARRATIVE: CASE EVENT DATE: 201505
